FAERS Safety Report 7057130-8 (Version None)
Quarter: 2010Q4

REPORT INFORMATION
  Report Type: 
  Country: None (occurrence: None)
  Receive Date: 20101022
  Receipt Date: 20101008
  Transmission Date: 20110411
  Serious: Yes (Hospitalization)
  Sender: FDA-Public Use
  Company Number: PHHY2010CA61534

PATIENT
  Sex: Female

DRUGS (2)
  1. EXJADE [Suspect]
     Indication: MYELODYSPLASTIC SYNDROME
     Dosage: 750 MG/DAY
     Route: 048
     Dates: start: 20100707, end: 20100826
  2. FOSAMAX [Concomitant]
     Indication: MENOPAUSE

REACTIONS (1)
  - PNEUMONIA [None]
